FAERS Safety Report 7638365-X (Version None)
Quarter: 2011Q3

REPORT INFORMATION
  Report Type: 
  Country: None (occurrence: None)
  Receive Date: 20110727
  Receipt Date: 20110725
  Transmission Date: 20111222
  Serious: Yes (Other)
  Sender: FDA-Public Use
  Company Number: US-SANOFI-AVENTIS-2011SA034291

PATIENT
  Age: 68 Year
  Sex: Female

DRUGS (1)
  1. MULTAQ [Suspect]
     Indication: ATRIAL FIBRILLATION
     Route: 048
     Dates: start: 20100501

REACTIONS (7)
  - HAEMOGLOBIN DECREASED [None]
  - HYPERHIDROSIS [None]
  - BOWEL MOVEMENT IRREGULARITY [None]
  - HEADACHE [None]
  - ATRIAL FIBRILLATION [None]
  - DIZZINESS [None]
  - BACK PAIN [None]
